FAERS Safety Report 23016220 (Version 1)
Quarter: 2023Q4

REPORT INFORMATION
  Report Type: Spontaneous
  Country: US (occurrence: US)
  Receive Date: 20231002
  Receipt Date: 20231002
  Transmission Date: 20240110
  Serious: No
  Sender: FDA-Public Use
  Company Number: US-HARMONY BIOSCIENCES-2023HMY00465

PATIENT
  Sex: Male
  Weight: 86.168 kg

DRUGS (2)
  1. WAKIX [Suspect]
     Active Substance: PITOLISANT HYDROCHLORIDE
     Indication: Narcolepsy
     Dosage: UNK, 1X/DAY TITRATED TO 17.8 MG 1X/DAY
     Dates: start: 20221223
  2. WAKIX [Suspect]
     Active Substance: PITOLISANT HYDROCHLORIDE
     Indication: Narcolepsy
     Dosage: UNK, 1X/DAY 4.45 TITRATED TO 17.8 MG
     Dates: end: 20230201

REACTIONS (1)
  - Insomnia [Recovered/Resolved]
